FAERS Safety Report 7072894-5 (Version None)
Quarter: 2010Q4

REPORT INFORMATION
  Report Type: 
  Country: None (occurrence: None)
  Receive Date: 20101029
  Receipt Date: 20100326
  Transmission Date: 20110411
  Serious: No
  Sender: FDA-Public Use
  Company Number: A0852187A

PATIENT
  Sex: Female

DRUGS (5)
  1. ADVAIR DISKUS 100/50 [Suspect]
     Indication: CHRONIC OBSTRUCTIVE PULMONARY DISEASE
     Dosage: 1PUFF TWICE PER DAY
     Route: 055
     Dates: start: 20100305
  2. LIPITOR [Concomitant]
  3. AVAPRO [Concomitant]
  4. LABETALOL HCL [Concomitant]
  5. PROVENTIL [Concomitant]

REACTIONS (1)
  - INSOMNIA [None]
